FAERS Safety Report 8134121 (Version 2)
Quarter: 2012Q4

REPORT INFORMATION
  Report Type: 
  Country: US (occurrence: US)
  Receive Date: 20110913
  Receipt Date: 20120913
  Transmission Date: 20130627
  Serious: Yes (Hospitalization, Other)
  Sender: FDA-Public Use
  Company Number: US-ROCHE-774813

PATIENT
  Age: 14 Year
  Sex: Male
  Weight: 65.8 kg

DRUGS (1)
  1. ACCUTANE [Suspect]
     Indication: ACNE
     Route: 048
     Dates: start: 200208, end: 200302

REACTIONS (6)
  - Crohn^s disease [Unknown]
  - Inflammatory bowel disease [Unknown]
  - Emotional distress [Unknown]
  - Abscess intestinal [Unknown]
  - Blood triglycerides increased [Unknown]
  - Blood cholesterol increased [Unknown]
